FAERS Safety Report 25065766 (Version 1)
Quarter: 2025Q1

REPORT INFORMATION
  Report Type: Spontaneous
  Country: US (occurrence: US)
  Receive Date: 20250311
  Receipt Date: 20250311
  Transmission Date: 20250409
  Serious: Yes (Hospitalization, Other)
  Sender: BRISTOL-MYERS SQUIBB COMPANY
  Company Number: US-BRISTOL-MYERS SQUIBB COMPANY-2025-031945

PATIENT
  Age: 55 Year
  Sex: Female

DRUGS (1)
  1. POMALYST [Suspect]
     Active Substance: POMALIDOMIDE
     Indication: Product used for unknown indication
     Dosage: QD X 21DAYS AND 7 DAYS OFF
     Route: 048

REACTIONS (3)
  - Thyroid disorder [Unknown]
  - Spinal disorder [Unknown]
  - Thrombosis [Unknown]

NARRATIVE: CASE EVENT DATE: 20250101
